FAERS Safety Report 13281874 (Version 1)
Quarter: 2017Q1

REPORT INFORMATION
  Report Type: Spontaneous
  Country: US (occurrence: US)
  Receive Date: 20170301
  Receipt Date: 20170301
  Transmission Date: 20170428
  Serious: Yes (Other)
  Sender: FDA-Public Use
  Company Number: None

PATIENT
  Age: 77 Year
  Sex: Female
  Weight: 88 kg

DRUGS (17)
  1. SALMON OIL [Concomitant]
     Active Substance: FISH OIL
  2. ZEAXANTHIN [Concomitant]
     Active Substance: ZEAXANTHIN
  3. CALCIUM [Concomitant]
     Active Substance: CALCIUM
  4. COQ10 [Concomitant]
     Active Substance: UBIDECARENONE
  5. LUTEINT [Concomitant]
  6. PREMARIN VAGINAL [Suspect]
     Active Substance: ESTROGENS, CONJUGATED
     Indication: URINARY TRACT DISORDER
     Dosage: FREQUENCY - 1XDAY FOR 2 WKS THEN 2X^S A WK
     Route: 067
     Dates: start: 20161026, end: 20161114
  7. LOVASTATIN. [Concomitant]
     Active Substance: LOVASTATIN
  8. VITAMIN D3 [Concomitant]
     Active Substance: CHOLECALCIFEROL
  9. PRESERVISION AREDS #2 [Concomitant]
  10. MILK THISTLE [Concomitant]
     Active Substance: MILK THISTLE
  11. HYDROCO/APAP [Concomitant]
     Active Substance: ACETAMINOPHEN\HYDROCODONE
  12. METFORMIN [Concomitant]
     Active Substance: METFORMIN HYDROCHLORIDE
  13. GINKO BALBOA [Concomitant]
  14. LOSARTAN. [Concomitant]
     Active Substance: LOSARTAN
  15. ZYRTEC [Concomitant]
     Active Substance: CETIRIZINE HYDROCHLORIDE
  16. MAGNESIUM [Concomitant]
     Active Substance: MAGNESIUM
  17. DOCUSATE SODIUM. [Concomitant]
     Active Substance: DOCUSATE SODIUM

REACTIONS (2)
  - Vision blurred [None]
  - Speech disorder [None]

NARRATIVE: CASE EVENT DATE: 20161116
